FAERS Safety Report 4302516-5 (Version None)
Quarter: 2004Q1

REPORT INFORMATION
  Report Type: 
  Country: None (occurrence: None)
  Receive Date: 20040223
  Receipt Date: 20040223
  Transmission Date: 20041129
  Serious: Yes (Death, Life-Threatening, Hospitalization)
  Sender: FDA-Public Use
  Company Number: None

PATIENT
  Age: 60 Year
  Sex: Female
  Weight: 107.3 kg

DRUGS (2)
  1. CLINDAMYCIN [Suspect]
     Indication: FALL
     Dosage: PO
     Route: 048
     Dates: start: 20030423, end: 20030430
  2. CLINDAMYCIN [Suspect]
     Indication: LACERATION
     Dosage: PO
     Route: 048
     Dates: start: 20030423, end: 20030430

REACTIONS (10)
  - BRADYCARDIA [None]
  - CLOSTRIDIUM COLITIS [None]
  - HYPOTENSION [None]
  - LEUKOCYTOSIS [None]
  - MULTI-ORGAN FAILURE [None]
  - PYREXIA [None]
  - RENAL FAILURE ACUTE [None]
  - RESPIRATORY ARREST [None]
  - RESPIRATORY DISORDER [None]
  - SEPTIC SHOCK [None]
